FAERS Safety Report 7263993-3 (Version None)
Quarter: 2011Q1

REPORT INFORMATION
  Report Type: 
  Country: None (occurrence: None)
  Receive Date: 20110130
  Receipt Date: 20101101
  Transmission Date: 20110831
  Serious: No
  Sender: FDA-Public Use
  Company Number: US-ABBOTT-10P-163-0682733-00

PATIENT
  Weight: 94.886 kg

DRUGS (6)
  1. UNKNOWN INHALER [Concomitant]
     Indication: ASTHMA
     Route: 055
  2. METFORMIN [Concomitant]
     Indication: DIABETES MELLITUS
     Dosage: 1/2 TABLET 3 TIMES A DAY
  3. METOPROLOL [Concomitant]
     Indication: HYPERTENSION
  4. HUMIRA [Suspect]
     Indication: ANKYLOSING SPONDYLITIS
     Route: 058
     Dates: start: 20101011
  5. ADVAIR [Concomitant]
     Indication: ASTHMA
     Dosage: 150/50 ONE PUFF TWICE A DAY
     Route: 055
  6. INFLUENZA VACCINE [Concomitant]
     Indication: ANTIVIRAL PROPHYLAXIS
     Route: 030
     Dates: start: 20101011, end: 20101011

REACTIONS (6)
  - URINARY TRACT INFECTION [None]
  - BACTERIAL TEST POSITIVE [None]
  - SINUS CONGESTION [None]
  - BACK PAIN [None]
  - COUGH [None]
  - ABDOMINAL PAIN LOWER [None]
